FAERS Safety Report 6098698-8 (Version None)
Quarter: 2009Q1

REPORT INFORMATION
  Report Type: 
  Country: None (occurrence: None)
  Receive Date: 20090302
  Receipt Date: 20090219
  Transmission Date: 20090719
  Serious: Yes (Hospitalization)
  Sender: FDA-Public Use
  Company Number: JP-WATSON-2009-01261

PATIENT
  Age: 73 Year
  Sex: Male

DRUGS (4)
  1. RAPAFLO [Suspect]
     Indication: BLADDER OBSTRUCTION
     Dosage: 4 MG, BID
     Route: 048
     Dates: start: 20080110, end: 20081125
  2. CERNILTON                          /00521401/ [Suspect]
     Indication: BENIGN PROSTATIC HYPERPLASIA
     Dosage: 6 DF, DAILY
     Route: 048
     Dates: start: 20071115, end: 20080227
  3. CERNILTON                          /00521401/ [Suspect]
     Dosage: 4 DF, DAILY
     Route: 048
     Dates: start: 20080228, end: 20081015
  4. BLADDERON [Suspect]
     Indication: POLLAKIURIA
     Dosage: 600 MG, DAILY
     Route: 048
     Dates: start: 20081016, end: 20081125

REACTIONS (1)
  - HEPATIC FUNCTION ABNORMAL [None]
